FAERS Safety Report 8205380-7 (Version None)
Quarter: 2012Q1

REPORT INFORMATION
  Report Type: 
  Country: None (occurrence: None)
  Receive Date: 20120313
  Receipt Date: 20120227
  Transmission Date: 20120608
  Serious: Yes (Hospitalization)
  Sender: FDA-Public Use
  Company Number: TR-WATSON-2012-03782

PATIENT
  Age: 15 Year
  Sex: Male

DRUGS (1)
  1. ACYCLOVIR [Suspect]
     Indication: ENCEPHALITIS HERPES
     Dosage: 30 MG/KG, DAILY
     Route: 042

REACTIONS (2)
  - DERMATITIS BULLOUS [None]
  - SKIN NECROSIS [None]
